FAERS Safety Report 6516408-4 (Version None)
Quarter: 2009Q4

REPORT INFORMATION
  Report Type: 
  Country: None (occurrence: None)
  Receive Date: 20091223
  Receipt Date: 20091214
  Transmission Date: 20100525
  Serious: Yes (Hospitalization)
  Sender: FDA-Public Use
  Company Number: B0609081A

PATIENT
  Sex: Male

DRUGS (10)
  1. SERETIDE [Suspect]
     Indication: CHRONIC OBSTRUCTIVE PULMONARY DISEASE
     Dosage: 250MCG TWICE PER DAY
     Route: 055
     Dates: start: 20091002, end: 20091002
  2. SERETIDE [Suspect]
     Dosage: 250MCG TWICE PER DAY
     Route: 055
     Dates: start: 20091123, end: 20091123
  3. SPIRIVA [Concomitant]
     Indication: CHRONIC OBSTRUCTIVE PULMONARY DISEASE
     Dosage: 18MCG PER DAY
     Route: 055
     Dates: start: 20080101
  4. MEPTIN AIR [Concomitant]
     Route: 055
  5. SIGMART [Concomitant]
     Indication: ANGINA PECTORIS
     Dosage: 15MG PER DAY
     Route: 055
     Dates: start: 19990101
  6. ITOROL [Concomitant]
     Indication: ANGINA PECTORIS
     Dosage: 40MG PER DAY
     Route: 055
     Dates: start: 19990101
  7. NORVASC [Concomitant]
     Indication: ANGINA PECTORIS
     Dosage: 5MG PER DAY
     Route: 055
     Dates: start: 20080101
  8. THEOLONG [Concomitant]
     Indication: ASTHMA
     Dosage: 200MG PER DAY
     Route: 055
     Dates: start: 19990101
  9. SINGULAIR [Concomitant]
     Indication: ASTHMA
     Dosage: 10MG PER DAY
     Route: 055
     Dates: start: 19990101
  10. UNKNOWN DRUG [Concomitant]

REACTIONS (8)
  - ASTHMA [None]
  - CARBON DIOXIDE INCREASED [None]
  - DYSPNOEA [None]
  - FEELING ABNORMAL [None]
  - LOSS OF CONSCIOUSNESS [None]
  - PNEUMONIA [None]
  - RESPIRATORY FAILURE [None]
  - STATUS ASTHMATICUS [None]
